FAERS Safety Report 21415061 (Version 2)
Quarter: 2023Q1

REPORT INFORMATION
  Report Type: Spontaneous
  Country: US (occurrence: US)
  Receive Date: 20221006
  Receipt Date: 20230110
  Transmission Date: 20230417
  Serious: Yes (Other)
  Sender: FDA-Public Use
  Company Number: US-ALLERGAN-2231822US

PATIENT
  Sex: Female
  Weight: 137.8 kg

DRUGS (1)
  1. QULIPTA [Suspect]
     Active Substance: ATOGEPANT
     Indication: Migraine
     Dosage: 60 MG, QD
     Route: 048

REACTIONS (6)
  - Gastrointestinal haemorrhage [Recovered/Resolved]
  - Dizziness [Unknown]
  - Dyspepsia [Unknown]
  - Irritable bowel syndrome [Recovered/Resolved]
  - Migraine [Unknown]
  - Constipation [Recovered/Resolved]
